FAERS Safety Report 8279461-6 (Version None)
Quarter: 2012Q2

REPORT INFORMATION
  Report Type: 
  Country: None (occurrence: None)
  Receive Date: 20120412
  Receipt Date: 20111107
  Transmission Date: 20120825
  Serious: No
  Sender: FDA-Public Use
  Company Number: US-ASTRAZENECA-2011SE65090

PATIENT
  Age: 64 Year
  Sex: Female

DRUGS (1)
  1. NEXIUM [Suspect]
     Route: 048

REACTIONS (6)
  - FACIAL PAIN [None]
  - INTERVERTEBRAL DISC PROTRUSION [None]
  - NASAL DISORDER [None]
  - NERVE COMPRESSION [None]
  - SINUSITIS [None]
  - DYSPHONIA [None]
